FAERS Safety Report 7622423-X (Version None)
Quarter: 2011Q3

REPORT INFORMATION
  Report Type: 
  Country: None (occurrence: None)
  Receive Date: 20110711
  Receipt Date: 20110628
  Transmission Date: 20111222
  Serious: Yes (Hospitalization)
  Sender: FDA-Public Use
  Company Number: DSA_47077_2011

PATIENT
  Age: 31 Year
  Sex: Female

DRUGS (1)
  1. WELLBUTRIN SR [Suspect]
     Indication: DRUG ABUSE
     Dosage: 150 MG 1X, ORAL
     Route: 048
     Dates: start: 20110402, end: 20110402

REACTIONS (4)
  - SOMNOLENCE [None]
  - DIZZINESS [None]
  - DRUG ABUSE [None]
  - INCORRECT DOSE ADMINISTERED [None]
